FAERS Safety Report 5706718-2 (Version None)
Quarter: 2008Q2

REPORT INFORMATION
  Report Type: 
  Country: None (occurrence: None)
  Receive Date: 20080416
  Receipt Date: 20080411
  Transmission Date: 20081010
  Serious: Yes (Death, Other)
  Sender: FDA-Public Use
  Company Number: PHHY2008BR05494

PATIENT
  Age: 82 Year
  Sex: Female

DRUGS (1)
  1. MIACALCIN [Suspect]
     Indication: ARTHRALGIA

REACTIONS (1)
  - NEOPLASM MALIGNANT [None]
